FAERS Safety Report 23638010 (Version 1)
Quarter: 2024Q1

REPORT INFORMATION
  Report Type: Spontaneous
  Country: FI (occurrence: None)
  Receive Date: 20240315
  Receipt Date: 20240315
  Transmission Date: 20240410
  Serious: Yes (Hospitalization, Other)
  Sender: FDA-Public Use
  Company Number: 2024A062377

PATIENT
  Age: 83 Year
  Sex: Female

DRUGS (8)
  1. CRESTOR [Suspect]
     Active Substance: ROSUVASTATIN CALCIUM
     Indication: Coronary artery disease
     Dosage: 40 MILLIGRAM, 1/DAY
     Route: 048
     Dates: start: 2018, end: 20240227
  2. CRESTOR [Suspect]
     Active Substance: ROSUVASTATIN CALCIUM
     Indication: Dyslipidaemia
     Dosage: 40 MILLIGRAM, 1/DAY
     Route: 048
     Dates: start: 2018, end: 20240227
  3. ORMOX [Concomitant]
     Indication: Coronary artery disease
     Dosage: 10 MILLIGRAM10.0MG UNKNOWN
     Route: 048
     Dates: start: 2018
  4. ASPIRIN [Concomitant]
     Active Substance: ASPIRIN
     Indication: Coronary artery disease
     Dosage: 100 MILLIGRAM, 1/DAY
     Route: 048
     Dates: start: 2009
  5. EZETIMIBE [Concomitant]
     Active Substance: EZETIMIBE
     Indication: Dyslipidaemia
     Dosage: 10 MILLIGRAM, 1/DAY
     Route: 048
     Dates: start: 2013
  6. EZETIMIBE [Concomitant]
     Active Substance: EZETIMIBE
     Indication: Coronary artery disease
     Dosage: 10 MILLIGRAM, 1/DAY
     Route: 048
     Dates: start: 2013
  7. COZAAR [Concomitant]
     Active Substance: LOSARTAN POTASSIUM
     Indication: Hypertension
     Dosage: 25 MILLIGRAM, 1/DAY
     Route: 048
     Dates: start: 2018
  8. BISOPROLOL FUMARATE [Concomitant]
     Active Substance: BISOPROLOL FUMARATE
     Indication: Coronary artery disease
     Dosage: 2.5 MILLIGRAM, 1/DAY
     Route: 048
     Dates: start: 2009

REACTIONS (5)
  - Acute kidney injury [Recovering/Resolving]
  - Foot fracture [Recovering/Resolving]
  - Muscular weakness [Recovering/Resolving]
  - Fall [Recovering/Resolving]
  - Myositis [Recovering/Resolving]

NARRATIVE: CASE EVENT DATE: 20240201
